FAERS Safety Report 7730919-5 (Version None)
Quarter: 2011Q3

REPORT INFORMATION
  Report Type: 
  Country: None (occurrence: None)
  Receive Date: 20110906
  Receipt Date: 20110901
  Transmission Date: 20111222
  Serious: Yes (Other)
  Sender: FDA-Public Use
  Company Number: BR-PFIZER INC-2011095698

PATIENT
  Age: 52 Year
  Sex: Male
  Weight: 61 kg

DRUGS (7)
  1. OMEPRAZOLE [Concomitant]
     Indication: ABDOMINAL PAIN UPPER
     Dosage: 20 MG, 2X/DAY
     Dates: start: 19960101
  2. OMEPRAZOLE [Concomitant]
     Indication: ULCER
  3. VARENICLINE TARTRATE [Suspect]
     Indication: SMOKING CESSATION THERAPY
     Dosage: 0.5 MG, 1X/DAY
     Route: 048
     Dates: start: 20110406, end: 20110101
  4. VARENICLINE TARTRATE [Suspect]
     Dosage: 2 TABLETS PER DAY
     Route: 048
     Dates: start: 20110101, end: 20110701
  5. VARENICLINE TARTRATE [Suspect]
     Dosage: 1 MG, 2X/DAY
     Route: 048
     Dates: start: 20110101, end: 20110101
  6. DICLOFENAC [Concomitant]
     Indication: PAIN
     Dosage: UNK
  7. BACTRIN [Concomitant]
     Indication: LUNG INFECTION
     Dosage: 3 TABLETS OF 400MG, TWICE DAILY
     Dates: start: 20110101

REACTIONS (7)
  - VISUAL IMPAIRMENT [None]
  - EATING DISORDER [None]
  - ABDOMINAL PAIN UPPER [None]
  - RETCHING [None]
  - DEPRESSION [None]
  - VISUAL ACUITY REDUCED [None]
  - HYPOPHAGIA [None]
